FAERS Safety Report 8561562-6 (Version None)
Quarter: 2012Q3

REPORT INFORMATION
  Report Type: 
  Country: None (occurrence: None)
  Receive Date: 20120802
  Receipt Date: 20120726
  Transmission Date: 20120928
  Serious: Yes (Other)
  Sender: FDA-Public Use
  Company Number: PHHY2012CA064477

PATIENT
  Sex: Male

DRUGS (3)
  1. PYRAZINAMIDE [Suspect]
     Indication: PULMONARY TUBERCULOSIS
  2. RIFAMPICIN [Suspect]
     Indication: PULMONARY TUBERCULOSIS
  3. ISONIAZID [Suspect]
     Indication: PULMONARY TUBERCULOSIS
     Dosage: 12 MG/KG/DAY

REACTIONS (6)
  - PARADOXICAL DRUG REACTION [None]
  - COUGH [None]
  - PYREXIA [None]
  - BREATH SOUNDS ABNORMAL [None]
  - TUBERCULOSIS [None]
  - STRIDOR [None]
